FAERS Safety Report 8222706-9 (Version None)
Quarter: 2012Q1

REPORT INFORMATION
  Report Type: 
  Country: None (occurrence: None)
  Receive Date: 20120320
  Receipt Date: 20120308
  Transmission Date: 20120608
  Serious: Yes (Other)
  Sender: FDA-Public Use
  Company Number: IT-ELI_LILLY_AND_COMPANY-IT201203002498

PATIENT
  Sex: Female

DRUGS (3)
  1. FORTEO [Suspect]
     Dosage: UNK
     Dates: start: 20120302
  2. VITAMIN D [Concomitant]
  3. EBASTINE [Concomitant]
     Indication: ANTIALLERGIC THERAPY
     Dosage: UNK

REACTIONS (4)
  - PALPITATIONS [None]
  - TACHYCARDIA [None]
  - FATIGUE [None]
  - DYSPNOEA [None]
